FAERS Safety Report 20577406 (Version 1)
Quarter: 2022Q1

REPORT INFORMATION
  Report Type: Spontaneous
  Country: US (occurrence: None)
  Receive Date: 20220310
  Receipt Date: 20220310
  Transmission Date: 20220423
  Serious: Yes (Other)
  Sender: FDA-Public Use
  Company Number: 2022A101896

PATIENT
  Age: 49 Year
  Sex: Female

DRUGS (3)
  1. FARXIGA [Suspect]
     Active Substance: DAPAGLIFLOZIN PROPANEDIOL
     Indication: Type 2 diabetes mellitus
     Route: 048
     Dates: start: 2019, end: 2019
  2. FARXIGA [Suspect]
     Active Substance: DAPAGLIFLOZIN PROPANEDIOL
     Indication: Type 2 diabetes mellitus
     Dosage: 5 MG DAILY - CUT THE TABLETS IN HALF
     Route: 048
     Dates: start: 20220304
  3. OZEMPIC [Suspect]
     Active Substance: SEMAGLUTIDE
     Route: 065

REACTIONS (4)
  - Abdominal pain upper [Unknown]
  - Fungal infection [Recovered/Resolved]
  - Blood glucose abnormal [Not Recovered/Not Resolved]
  - Off label use [Unknown]

NARRATIVE: CASE EVENT DATE: 20190101
